FAERS Safety Report 20626076 (Version 1)
Quarter: 2022Q1

REPORT INFORMATION
  Report Type: Spontaneous
  Country: NL (occurrence: NL)
  Receive Date: 20220323
  Receipt Date: 20220323
  Transmission Date: 20220423
  Serious: Yes (Hospitalization)
  Sender: FDA-Public Use
  Company Number: NL-AMGEN-NLDSP2022050319

PATIENT
  Age: 36 Year
  Sex: Female

DRUGS (3)
  1. ERENUMAB [Suspect]
     Active Substance: ERENUMAB
     Indication: Migraine
     Dosage: 1 DOSAGE FORM, Q4W (1 X PER 4 WEKEN 1 STUK) (PEN 1ML)
     Route: 065
     Dates: start: 20190506
  2. ETHINYL ESTRADIOL\LEVONORGESTREL [Concomitant]
     Active Substance: ETHINYL ESTRADIOL\LEVONORGESTREL
     Indication: Product used for unknown indication
     Dosage: UNK (TABLET, 30/150 MUG (MICROGRAM))
     Route: 065
  3. ELETRIPTAN [Concomitant]
     Active Substance: ELETRIPTAN
     Indication: Product used for unknown indication
     Dosage: 40 MILLIGRAM (FILMOMHULDE TABLET, 40 MG (MILLIGRAM))
     Route: 065

REACTIONS (1)
  - Cervix carcinoma stage I [Not Recovered/Not Resolved]

NARRATIVE: CASE EVENT DATE: 20220201
